APPROVED DRUG PRODUCT: PROVAYBLUE
Active Ingredient: METHYLENE BLUE
Strength: 50MG/10ML (5MG/ML)
Dosage Form/Route: SOLUTION;INTRAVENOUS
Application: N204630 | Product #001 | TE Code: AP
Applicant: PROVEPHARM SAS
Approved: Apr 8, 2016 | RLD: Yes | RS: Yes | Type: RX

EXCLUSIVITY:
Code: M-303 | Date: Jan 8, 2027